FAERS Safety Report 12384034 (Version 1)
Quarter: 2016Q2

REPORT INFORMATION
  Report Type: Spontaneous
  Country: US (occurrence: None)
  Receive Date: 20160518
  Receipt Date: 20160518
  Transmission Date: 20160815
  Serious: Yes (Life-Threatening, Hospitalization, Other)
  Sender: FDA-Public Use
  Company Number: None

PATIENT
  Age: 87 Year
  Sex: Female
  Weight: 58.06 kg

DRUGS (3)
  1. XARELTO (RIVAROXABAN) JANSSEN PHARMACEUTICALS, INC [Suspect]
     Active Substance: RIVAROXABAN
     Indication: THROMBOSIS
     Dosage: 15MG 1 P ILL TWICE DAILY MOUTH
     Route: 048
     Dates: start: 20160414, end: 20160421
  2. SYNTHROID [Concomitant]
     Active Substance: LEVOTHYROXINE SODIUM
  3. ASPIRIN. [Concomitant]
     Active Substance: ASPIRIN

REACTIONS (2)
  - Gastrointestinal haemorrhage [None]
  - Rectal haemorrhage [None]

NARRATIVE: CASE EVENT DATE: 20160427
